FAERS Safety Report 9934831 (Version 1)
Quarter: 2014Q1

REPORT INFORMATION
  Report Type: Report from Study
  Country: ES (occurrence: ES)
  Receive Date: 20140228
  Receipt Date: 20140228
  Transmission Date: 20141002
  Serious: Yes (Disabling)
  Sender: FDA-Public Use
  Company Number: ES-BAYER-2014-031798

PATIENT
  Sex: Female

DRUGS (1)
  1. REGORAFENIB [Suspect]
     Indication: COLON CANCER METASTATIC
     Dosage: 160 MG, QD
     Route: 048

REACTIONS (2)
  - Hypersensitivity [None]
  - Asthenia [None]
